FAERS Safety Report 9063734 (Version 1)
Quarter: 2013Q1

REPORT INFORMATION
  Report Type: Spontaneous
  Country: JP (occurrence: JP)
  Receive Date: 20130213
  Receipt Date: 20130213
  Transmission Date: 20140127
  Serious: Yes (Other)
  Sender: FDA-Public Use
  Company Number: JP-ASTELLAS-2013JP000567

PATIENT
  Age: 83 Year
  Sex: Male

DRUGS (4)
  1. BETANIS [Suspect]
     Indication: HYPERTONIC BLADDER
     Dosage: 50 MG, UID/QD
     Route: 048
     Dates: start: 20121225, end: 20130111
  2. METHYCOBAL [Concomitant]
     Route: 065
  3. MUCODYNE [Concomitant]
     Route: 048
  4. AMLODIN [Concomitant]
     Route: 048

REACTIONS (1)
  - Parkinsonism [Recovered/Resolved]
